FAERS Safety Report 6939595-2 (Version None)
Quarter: 2010Q3

REPORT INFORMATION
  Report Type: 
  Country: None (occurrence: None)
  Receive Date: 20100824
  Receipt Date: 20100816
  Transmission Date: 20110219
  Serious: Yes (Hospitalization, Other)
  Sender: FDA-Public Use
  Company Number: CA-ABBOTT-10P-028-0664700-00

PATIENT
  Sex: Male

DRUGS (20)
  1. HUMIRA [Suspect]
     Indication: PSORIATIC ARTHROPATHY
     Route: 058
     Dates: start: 20091223, end: 20100721
  2. ASAPHEN [Concomitant]
     Indication: PRODUCT USED FOR UNKNOWN INDICATION
     Dosage: 80 MG QD
     Route: 048
  3. PAXIL [Concomitant]
     Indication: PRODUCT USED FOR UNKNOWN INDICATION
     Dosage: 20 MG QD
     Route: 048
  4. ATARAX [Concomitant]
     Indication: PRURITUS
     Route: 048
  5. DILAUDID [Concomitant]
     Indication: PAIN
     Dosage: 4 MG QHS
     Route: 048
  6. LASIX [Concomitant]
     Indication: PRODUCT USED FOR UNKNOWN INDICATION
     Dosage: 20 MG QD
     Route: 048
  7. SULFASALAZINE [Concomitant]
     Indication: PRODUCT USED FOR UNKNOWN INDICATION
     Dosage: 500 MG 2 TABS QHS
     Route: 048
  8. HUMALOG [Concomitant]
     Indication: DIABETES MELLITUS
     Route: 058
  9. HUMULIN N [Concomitant]
     Indication: DIABETES MELLITUS
     Dosage: 10 UNITS QAM
     Route: 058
  10. HUMULIN N [Concomitant]
     Dosage: 64 UNITS QHS
     Route: 058
  11. RIVOTRIL [Concomitant]
     Indication: PRODUCT USED FOR UNKNOWN INDICATION
     Dosage: 0.5 MG HS
     Route: 048
  12. DOVONEX [Concomitant]
     Indication: PRODUCT USED FOR UNKNOWN INDICATION
     Dosage: QPM
     Route: 061
  13. LAMISIL [Concomitant]
     Indication: TINEA PEDIS
     Dosage: Q2-3 DAYS PRN
     Route: 061
  14. TERBINANCINE 1% [Concomitant]
     Indication: SKIN PLAQUE
     Route: 061
  15. QUININE [Concomitant]
     Indication: PSORIATIC ARTHROPATHY
     Dosage: 300 MG QHS
     Route: 048
  16. CLONAZEPAM [Concomitant]
     Indication: ANXIOLYTIC THERAPY
     Dosage: 0.5 MG QHS
  17. NASONEX [Concomitant]
     Indication: PRODUCT USED FOR UNKNOWN INDICATION
     Dosage: 2 SPRAYS Q NOSTRIL BID
     Route: 055
  18. CHLORHYDRATE [Concomitant]
     Indication: INSOMNIA
     Dosage: QHS PRN
  19. METFORMIN [Concomitant]
     Indication: DIABETES MELLITUS
  20. PRO-SHIELD [Concomitant]
     Indication: ANAL ULCER
     Route: 061

REACTIONS (10)
  - ASTHENIA [None]
  - BLOOD GLUCOSE FLUCTUATION [None]
  - CELLULITIS [None]
  - DIARRHOEA [None]
  - OEDEMA PERIPHERAL [None]
  - OPEN WOUND [None]
  - PSORIASIS [None]
  - PURULENT DISCHARGE [None]
  - VISION BLURRED [None]
  - WEIGHT DECREASED [None]
